FAERS Safety Report 18944842 (Version 1)
Quarter: 2021Q1

REPORT INFORMATION
  Report Type: Spontaneous
  Country: US (occurrence: US)
  Receive Date: 20210226
  Receipt Date: 20210226
  Transmission Date: 20210420
  Serious: Yes (Hospitalization)
  Sender: FDA-Public Use
  Company Number: None

PATIENT
  Age: 68 Year
  Sex: Female

DRUGS (1)
  1. XOLAIR [Suspect]
     Active Substance: OMALIZUMAB
     Indication: ASTHMA
     Route: 058
     Dates: start: 20210225, end: 20210225

REACTIONS (5)
  - Oropharyngeal discomfort [None]
  - Anxiety [None]
  - Vertigo [None]
  - Dizziness [None]
  - Paraesthesia oral [None]

NARRATIVE: CASE EVENT DATE: 20210226
